FAERS Safety Report 8105586-1 (Version None)
Quarter: 2012Q1

REPORT INFORMATION
  Report Type: 
  Country: None (occurrence: None)
  Receive Date: 20120201
  Receipt Date: 20120123
  Transmission Date: 20120608
  Serious: Yes (Hospitalization)
  Sender: FDA-Public Use
  Company Number: TR-ROCHE-778670

PATIENT
  Sex: Male
  Weight: 74.9 kg

DRUGS (13)
  1. CHLORAMBUCIL [Suspect]
     Indication: CHRONIC LYMPHOCYTIC LEUKAEMIA
     Dosage: FREUENCY: 18MG/DAY. LAST DOSE PRIOR TO SAE: 27 APRIL 2011
     Route: 048
     Dates: start: 20110324, end: 20110427
  2. CHLORAMBUCIL [Suspect]
     Dosage: FREQUENCY: 18MG/DAY
     Route: 048
     Dates: start: 20110601
  3. MONOKET [Concomitant]
     Dosage: REPORTED AS: MONOKET LONG
     Dates: start: 19900101, end: 20110520
  4. DEXAMETHASONE [Concomitant]
     Dates: start: 20110920, end: 20110924
  5. CORASPIN [Concomitant]
     Dates: start: 19900101, end: 20110518
  6. ATORVASTATIN CALCIUM [Concomitant]
     Dates: start: 20110518, end: 20110901
  7. MABTHERA [Suspect]
     Dosage: DOSAGE FORM: VIAL
     Route: 042
     Dates: start: 20110601
  8. BELOC [Concomitant]
     Dates: start: 19900101, end: 20110518
  9. FLUDARA [Concomitant]
     Dates: start: 20110920, end: 20110924
  10. MABTHERA [Suspect]
     Indication: CHRONIC LYMPHOCYTIC LEUKAEMIA
     Dosage: LAST DOSE PRIOR TO SAE:18 MAY 2011, DOSE FORM: VIAL
     Route: 042
     Dates: start: 20110324, end: 20110518
  11. VASTAREL [Concomitant]
     Dates: start: 19900101
  12. LANSOR [Concomitant]
     Dates: start: 20110920, end: 20110924
  13. GRANISETRON [Concomitant]
     Dates: start: 20110920, end: 20110924

REACTIONS (1)
  - ATRIAL FIBRILLATION [None]
